FAERS Safety Report 25939621 (Version 1)
Quarter: 2025Q4

REPORT INFORMATION
  Report Type: Report from Study
  Country: CA (occurrence: CA)
  Receive Date: 20251020
  Receipt Date: 20251020
  Transmission Date: 20260118
  Serious: Yes (Hospitalization, Other)
  Sender: NORDIC PHARMA
  Company Number: CA-NORDICGR-064346

PATIENT
  Age: 64 Year
  Sex: Male
  Weight: 91 kg

DRUGS (13)
  1. METHOTREXATE [Suspect]
     Active Substance: METHOTREXATE
     Indication: Psoriasis
     Route: 065
  2. IXEKIZUMAB [Concomitant]
     Active Substance: IXEKIZUMAB
     Indication: Psoriasis
     Route: 065
  3. IXEKIZUMAB [Concomitant]
     Active Substance: IXEKIZUMAB
     Indication: Psoriasis
     Route: 065
  4. BRODALUMAB [Concomitant]
     Active Substance: BRODALUMAB
     Indication: Product used for unknown indication
     Route: 065
  5. GUSELKUMAB [Concomitant]
     Active Substance: GUSELKUMAB
     Indication: Product used for unknown indication
     Route: 065
  6. INFLIXIMAB [Concomitant]
     Active Substance: INFLIXIMAB
     Indication: Psoriasis
     Route: 065
  7. INFLIXIMAB [Concomitant]
     Active Substance: INFLIXIMAB
     Indication: Psoriasis
     Route: 065
  8. INFLIXIMAB [Concomitant]
     Active Substance: INFLIXIMAB
     Indication: Psoriasis
     Route: 065
  9. INFLIXIMAB [Concomitant]
     Active Substance: INFLIXIMAB
     Indication: Psoriasis
     Route: 065
  10. COSENTYX [Concomitant]
     Active Substance: SECUKINUMAB
     Indication: Psoriasis
     Route: 065
  11. VALPROATE SODIUM [Concomitant]
     Active Substance: VALPROATE SODIUM
     Indication: Product used for unknown indication
     Route: 065
  12. BETADERM [Concomitant]
     Active Substance: BETAMETHASONE VALERATE
     Indication: Psoriasis
     Dosage: DOSAGE: 1 DOSAGE FORMS
     Route: 065
  13. BETADERM [Concomitant]
     Active Substance: BETAMETHASONE VALERATE
     Indication: Psoriasis
     Dosage: DOSAGE: 1 DOSAGE FORMS
     Route: 065

REACTIONS (21)
  - Pelvic fracture [Unknown]
  - Fall [Unknown]
  - Psoriasis [Unknown]
  - Hypertension [Unknown]
  - Pericardial effusion [Not Recovered/Not Resolved]
  - Vitamin B1 deficiency [Unknown]
  - Pleural effusion [Not Recovered/Not Resolved]
  - Gout [Unknown]
  - Hypokinesia [Unknown]
  - Pelvic fracture [Not Recovered/Not Resolved]
  - Back pain [Not Recovered/Not Resolved]
  - Fall [Unknown]
  - Craniocerebral injury [Unknown]
  - Jaw fracture [Unknown]
  - Craniofacial fracture [Unknown]
  - Back pain [Unknown]
  - Muscle strain [Unknown]
  - Chest pain [Not Recovered/Not Resolved]
  - Pleurisy [Not Recovered/Not Resolved]
  - Psoriasis [Unknown]
  - Drug ineffective [Unknown]
